FAERS Safety Report 7560985-1 (Version None)
Quarter: 2011Q2

REPORT INFORMATION
  Report Type: 
  Country: None (occurrence: None)
  Receive Date: 20110525
  Receipt Date: 20110509
  Transmission Date: 20111010
  Serious: No
  Sender: FDA-Public Use
  Company Number: 325140

PATIENT
  Sex: Female
  Weight: 51.2 kg

DRUGS (3)
  1. PRANDIN [Concomitant]
  2. METFORMIN HCL [Concomitant]
  3. VICTOZA [Suspect]
     Indication: TYPE 2 DIABETES MELLITUS
     Dosage: 1.2 MG, QD, SUBCUTANEOUS
     Route: 058

REACTIONS (5)
  - INJECTION SITE HAEMATOMA [None]
  - DRUG DOSE OMISSION [None]
  - WEIGHT DECREASED [None]
  - GLYCOSYLATED HAEMOGLOBIN INCREASED [None]
  - INJECTION SITE INFLAMMATION [None]
